FAERS Safety Report 9520810 (Version 1)
Quarter: 2013Q1

REPORT INFORMATION
  Report Type: Spontaneous
  Country: US (occurrence: None)
  Receive Date: 20130305
  Receipt Date: 20130305
  Transmission Date: 20140127
  Serious: Yes (Life-Threatening, Hospitalization)
  Sender: FDA-Public Use
  Company Number: 163-21880-12080101

PATIENT
  Age: 84 Year
  Sex: Female

DRUGS (12)
  1. REVLIMID [Suspect]
     Indication: PLASMA CELL MYELOMA
     Dosage: 10 MG, 21 IN 21 D, PO
     Route: 048
     Dates: start: 20110511
  2. AMLODIPINE (AMLODIPINE) (UNKNOWN) [Concomitant]
  3. BABY ASPIRIN (ACETYLSALICYLIC ACID) (UNKNOWN) [Concomitant]
  4. CALCIUM (CALCIUM) (UNKNOWN) [Concomitant]
  5. VITAMIN D (ERGOCALCIFEROL) (UNKNOWN) [Concomitant]
  6. FERROUS SULFATE (FERROUS SULFATE) (UNKNOWN) [Concomitant]
  7. GLIPIZIDE (GLIPIZIDE) (UNKNOWN) [Concomitant]
  8. LEVOTHYROXIN (LEVOTHYROXINE SODIUM) (UNKNOWN) [Concomitant]
  9. LISINOPRIL (LISINOPRIL) (UNKNOWN) [Concomitant]
  10. PERCOCET (OXYCOCET) (UNKNOWN) [Concomitant]
  11. STOOL SOFTENER (DOCUSATE SODIUM) (UNKNOWN) [Concomitant]
  12. ZOCOR (SIMVASTATIN) (UNKNOWN) [Concomitant]

REACTIONS (1)
  - Thrombosis [None]
